FAERS Safety Report 6775087-1 (Version None)
Quarter: 2010Q2

REPORT INFORMATION
  Report Type: 
  Country: None (occurrence: None)
  Receive Date: 20100617
  Receipt Date: 20100610
  Transmission Date: 20101027
  Serious: Yes (Death)
  Sender: FDA-Public Use
  Company Number: B0660282A

PATIENT
  Age: 60 Year
  Sex: Female

DRUGS (3)
  1. TYKERB [Suspect]
     Indication: DRUG USE FOR UNKNOWN INDICATION
     Dosage: 1250MG PER DAY
     Route: 048
     Dates: start: 20100201
  2. TYKERB [Suspect]
     Dosage: 1000MG PER DAY
     Route: 048
     Dates: end: 20100301
  3. XELODA [Concomitant]
     Dosage: 2000MG PER DAY
     Route: 048
     Dates: start: 20100201, end: 20100301

REACTIONS (1)
  - INTERSTITIAL LUNG DISEASE [None]
